FAERS Safety Report 19283508 (Version 1)
Quarter: 2021Q2

REPORT INFORMATION
  Report Type: Report from Study
  Country: CN (occurrence: CN)
  Receive Date: 20210520
  Receipt Date: 20210520
  Transmission Date: 20210717
  Serious: Yes (Other)
  Sender: FDA-Public Use
  Company Number: CN-JNJFOC-20210527135

PATIENT
  Sex: Male

DRUGS (1)
  1. ABIRATERONE ACETATE. [Suspect]
     Active Substance: ABIRATERONE ACETATE
     Indication: PROSTATE CANCER METASTATIC
     Route: 048

REACTIONS (7)
  - Thrombocytopenia [Unknown]
  - Hypokalaemia [Unknown]
  - Treatment failure [Unknown]
  - Neutropenia [Unknown]
  - Spinal compression fracture [Unknown]
  - Gastrointestinal toxicity [Unknown]
  - Urinary tract toxicity [Unknown]
